FAERS Safety Report 7586968-3 (Version None)
Quarter: 2011Q3

REPORT INFORMATION
  Report Type: 
  Country: None (occurrence: None)
  Receive Date: 20110701
  Receipt Date: 20110616
  Transmission Date: 20111222
  Serious: Yes (Hospitalization)
  Sender: FDA-Public Use
  Company Number: PHHO2011US10674

PATIENT
  Age: 52 Year
  Sex: Female
  Weight: 58.4 kg

DRUGS (3)
  1. AFINITOR [Suspect]
     Dosage: 5 MG, QD
     Route: 048
     Dates: start: 20110519
  2. TEMOZOLOMIDE [Concomitant]
     Dosage: 170 MG, UNK
     Route: 048
     Dates: start: 20100104, end: 20100520
  3. AFINITOR [Suspect]
     Indication: PANCREATIC CARCINOMA METASTATIC
     Dosage: 5 MG, QD
     Route: 048
     Dates: start: 20100114, end: 20110430

REACTIONS (1)
  - HAEMATOMA [None]
